FAERS Safety Report 16234714 (Version 4)
Quarter: 2021Q1

REPORT INFORMATION
  Report Type: Spontaneous
  Country: US (occurrence: US)
  Receive Date: 20190424
  Receipt Date: 20210224
  Transmission Date: 20210419
  Serious: No
  Sender: FDA-Public Use
  Company Number: US-VERTEX PHARMACEUTICALS-2019-003467

PATIENT
  Sex: Female

DRUGS (1)
  1. SYMDEKO [Suspect]
     Active Substance: IVACAFTOR\TEZACAFTOR
     Indication: CYSTIC FIBROSIS
     Dosage: 100MG TEZACAFTOR/150MG IVACAFTOR; 150MG IVACAFTOR TABLETS (FREQUENCY UNKNOWN)
     Route: 048
     Dates: start: 20190125, end: 202006

REACTIONS (8)
  - Dizziness [Recovered/Resolved]
  - Respiratory tract infection viral [Recovered/Resolved]
  - Gait disturbance [Recovered/Resolved]
  - Confusional state [Recovered/Resolved]
  - Migraine [Recovered/Resolved]
  - Thinking abnormal [Recovered/Resolved]
  - Nausea [Recovered/Resolved]
  - Dehydration [Recovered/Resolved]

NARRATIVE: CASE EVENT DATE: 2019
